FAERS Safety Report 8530282-6 (Version None)
Quarter: 2012Q3

REPORT INFORMATION
  Report Type: 
  Country: None (occurrence: None)
  Receive Date: 20120723
  Receipt Date: 20120716
  Transmission Date: 20120928
  Serious: Yes (Other)
  Sender: FDA-Public Use
  Company Number: SE-JNJFOC-20110504471

PATIENT
  Age: 33 Year
  Sex: Female

DRUGS (2)
  1. REMICADE [Suspect]
     Route: 042
     Dates: start: 20061027
  2. REMICADE [Suspect]
     Indication: CROHN'S DISEASE
     Dosage: TREATMENT TEMPORARILY POSTPONED WITH A 2 WEEK DELAY IN NOV-2010 FOR NEUTROPENIA. TREATMENT ONGOING.
     Route: 042
     Dates: start: 20070401

REACTIONS (3)
  - PREMATURE DELIVERY [None]
  - MATERNAL EXPOSURE DURING PREGNANCY [None]
  - NEUTROPENIA [None]
